FAERS Safety Report 6080449-4 (Version None)
Quarter: 2009Q1

REPORT INFORMATION
  Report Type: 
  Country: None (occurrence: None)
  Receive Date: 20090217
  Receipt Date: 20090210
  Transmission Date: 20090719
  Serious: Yes (Hospitalization)
  Sender: FDA-Public Use
  Company Number: PHHY2009FR04090

PATIENT
  Sex: Female
  Weight: 58 kg

DRUGS (4)
  1. ACLASTA [Suspect]
     Indication: OSTEOPOROSIS
     Dosage: 5 MG, UNK
     Route: 042
     Dates: start: 20090103
  2. BISOPROLOL [Concomitant]
     Indication: HYPERTENSION
     Dosage: 10 MG DAILY
  3. FLUDEX [Concomitant]
     Indication: HYPERTENSION
     Dosage: 1.5 MG PER DAY
  4. HYPERIUM [Concomitant]

REACTIONS (2)
  - CYST [None]
  - METRORRHAGIA [None]
